FAERS Safety Report 7418206-6 (Version None)
Quarter: 2011Q2

REPORT INFORMATION
  Report Type: 
  Country: None (occurrence: None)
  Receive Date: 20110415
  Receipt Date: 20110412
  Transmission Date: 20111010
  Serious: Yes (Hospitalization, Other)
  Sender: FDA-Public Use
  Company Number: FR-ABBOTT-11P-056-0718439-00

PATIENT
  Sex: Female

DRUGS (7)
  1. NORVIR [Interacting]
     Indication: HIV INFECTION
     Route: 048
  2. TRUVADA [Concomitant]
     Indication: HIV INFECTION
  3. TAXOTERE [Interacting]
     Dates: start: 20110114, end: 20110114
  4. ENDOXAN [Suspect]
     Dates: start: 20110114, end: 20110114
  5. ENDOXAN [Suspect]
     Indication: BREAST CANCER
     Dates: start: 20110211, end: 20110211
  6. TAXOTERE [Interacting]
     Indication: BREAST CANCER
     Route: 042
     Dates: start: 20110211, end: 20110211
  7. REYATAZ [Concomitant]
     Indication: HIV INFECTION

REACTIONS (5)
  - DYSPHAGIA [None]
  - SKIN TOXICITY [None]
  - DRUG INTERACTION [None]
  - STOMATITIS [None]
  - DIARRHOEA [None]
